FAERS Safety Report 9539204 (Version 1)
Quarter: 2013Q2

REPORT INFORMATION
  Report Type: Spontaneous
  Country: US (occurrence: None)
  Receive Date: 20130521
  Receipt Date: 20130521
  Transmission Date: 20140414
  Serious: No
  Sender: FDA-Public Use
  Company Number: 1000043238

PATIENT
  Age: 68 Year
  Sex: Male

DRUGS (5)
  1. TUDORZA PRESSAIR (ACLIDINIUM BROMIDE) (400 MICROGRAM, POWDER) [Suspect]
     Indication: PNEUMONIA
     Dosage: 400 MCG 2 IN 1 D
     Route: 048
     Dates: start: 201302
  2. PRIMIDONE (PRIMIDONE) (PRIMIDONE) [Concomitant]
  3. LIPITOR (ATORVASTATIN CALCIUM) (ATORVASTATIN CALCIUM) [Concomitant]
  4. METFORMIN (METFORMIN) (METFORMIN) [Concomitant]
  5. JANUVIA (SITAGLIPTIN PHOSPHATE) (SITAGLIPTIN PHOSPHATE) [Concomitant]

REACTIONS (3)
  - Blood pressure increased [None]
  - Blood glucose increased [None]
  - Off label use [None]
